FAERS Safety Report 7271494-1 (Version None)
Quarter: 2011Q1

REPORT INFORMATION
  Report Type: 
  Country: None (occurrence: None)
  Receive Date: 20110128
  Receipt Date: 20110128
  Transmission Date: 20110831
  Serious: Yes (Life-Threatening)
  Sender: FDA-Public Use
  Company Number: None

PATIENT
  Sex: Female
  Weight: 225 kg

DRUGS (1)
  1. PROPOXYPHENE HCL AND ACETAMINOPHEN [Suspect]
     Dosage: D AS NEEDED SWALLOW MARCH 2007 OR 2008

REACTIONS (5)
  - SYNCOPE [None]
  - DIZZINESS [None]
  - CARDIAC FLUTTER [None]
  - DYSURIA [None]
  - HEADACHE [None]
